FAERS Safety Report 20110807 (Version 3)
Quarter: 2022Q4

REPORT INFORMATION
  Report Type: Spontaneous
  Country: US (occurrence: US)
  Receive Date: 20211124
  Receipt Date: 20221114
  Transmission Date: 20230113
  Serious: Yes (Other)
  Sender: FDA-Public Use
  Company Number: US-PFIZER INC-202101566795

PATIENT
  Age: 65 Year
  Sex: Male

DRUGS (3)
  1. INLYTA [Suspect]
     Active Substance: AXITINIB
     Indication: Renal cell carcinoma
     Dosage: 5 MG
  2. INLYTA [Suspect]
     Active Substance: AXITINIB
     Dosage: TAKEN 1 PILL A DAY INSTEAD OF 2 TO SAVE TABLETS
  3. INLYTA [Suspect]
     Active Substance: AXITINIB
     Dosage: 5MG PO BID
     Route: 048

REACTIONS (7)
  - Second primary malignancy [Unknown]
  - Bone cancer [Unknown]
  - Viral upper respiratory tract infection [Recovering/Resolving]
  - Musculoskeletal chest pain [Unknown]
  - Malaise [Unknown]
  - Fatigue [Unknown]
  - Intentional product use issue [Unknown]
